FAERS Safety Report 22705782 (Version 2)
Quarter: 2023Q4

REPORT INFORMATION
  Report Type: Spontaneous
  Country: IR (occurrence: IR)
  Receive Date: 20230714
  Receipt Date: 20231125
  Transmission Date: 20240110
  Serious: Yes (Hospitalization, Other)
  Sender: FDA-Public Use
  Company Number: IR-Accord-366722

PATIENT
  Age: 29 Year
  Sex: Male
  Weight: 83 kg

DRUGS (10)
  1. ITRACONAZOLE [Interacting]
     Active Substance: ITRACONAZOLE
     Indication: Fungal infection
     Dosage: ON THE FIRST DAY OF THE CHEMOTHERAPY
  2. DOXORUBICIN [Interacting]
     Active Substance: DOXORUBICIN
     Indication: B-cell type acute leukaemia
     Dosage: 1-3 DAYS
     Route: 042
  3. VINCRISTINE [Interacting]
     Active Substance: VINCRISTINE
     Indication: B-cell type acute leukaemia
     Dosage: ON DAYS 1, 8, 15, 22
     Route: 042
  4. VALPROATE SODIUM [Concomitant]
     Active Substance: VALPROATE SODIUM
     Indication: Seizure
  5. CYCLOPHOSPHAMIDE [Concomitant]
     Active Substance: CYCLOPHOSPHAMIDE
     Indication: Neoplasm malignant
     Dosage: ON DAY 1
  6. PREDNISOLONE [Concomitant]
     Active Substance: PREDNISOLONE
     Indication: Neoplasm malignant
     Dosage: DAILY ON DAYS 1-21
     Route: 048
  7. ACYCLOVIR [Concomitant]
     Active Substance: ACYCLOVIR
     Indication: Infection
     Dosage: ON THE FIRST DAY OF THE CHEMOTHERAPY
  8. CIPROFLOXACIN [Concomitant]
     Active Substance: CIPROFLOXACIN
     Indication: Infection
     Dosage: ON THE FIRST DAY OF THE CHEMOTHERAPY
  9. SULFAMETHOXAZOLE\TRIMETHOPRIM [Concomitant]
     Active Substance: SULFAMETHOXAZOLE\TRIMETHOPRIM
     Indication: Pneumocystis jirovecii pneumonia
     Dosage: 400/80 MG DAILY
  10. ALLOPURINOL [Concomitant]
     Active Substance: ALLOPURINOL

REACTIONS (2)
  - Generalised tonic-clonic seizure [Recovered/Resolved]
  - Drug interaction [Unknown]
